FAERS Safety Report 7992134 (Version 2)
Quarter: 2012Q4

REPORT INFORMATION
  Report Type: 
  Country: CA (occurrence: CA)
  Receive Date: 20110615
  Receipt Date: 20121113
  Transmission Date: 20130627
  Serious: Yes (Hospitalization)
  Sender: FDA-Public Use
  Company Number: PHBS2001CA04543

PATIENT
  Age: 83 Year
  Sex: Female

DRUGS (2)
  1. EXELON [Suspect]
     Indication: DEMENTIA ALZHEIMER^S TYPE
     Dates: start: 20010404
  2. EXELON [Suspect]
     Dosage: 3 mg, BID
     Dates: start: 20010404

REACTIONS (5)
  - Pneumonia [Not Recovered/Not Resolved]
  - Dehydration [Not Recovered/Not Resolved]
  - Confusional state [Not Recovered/Not Resolved]
  - Abdominal pain [Recovered/Resolved]
  - Aggression [Recovered/Resolved]
